FAERS Safety Report 5655772-5 (Version None)
Quarter: 2008Q1

REPORT INFORMATION
  Report Type: 
  Country: None (occurrence: None)
  Receive Date: 20080307
  Receipt Date: 20080228
  Transmission Date: 20080703
  Serious: Yes (Death)
  Sender: FDA-Public Use
  Company Number: SE-PFIZER INC-2007104001

PATIENT
  Sex: Female

DRUGS (13)
  1. GENOTROPIN [Suspect]
     Indication: HYPOPITUITARISM
     Dosage: DAILY DOSE:1.2MG
     Route: 058
  2. CORTISONE ACETATE [Concomitant]
     Indication: BLOOD CORTISOL DECREASED
     Dates: start: 20030506
  3. DETRUSITOL [Concomitant]
     Dates: start: 19980221
  4. HIPREX [Concomitant]
     Indication: URINARY TRACT INFECTION
     Dates: start: 19950115
  5. LERGIGAN [Concomitant]
     Indication: DEPRESSION
     Dates: start: 20050801
  6. LEVOTHYROXINE SODIUM [Concomitant]
     Indication: HYPOTHYROIDISM
     Dates: start: 19600101
  7. LITHIONIT [Concomitant]
     Indication: PSYCHOTIC DISORDER
     Dates: start: 20041116
  8. LYRICA [Concomitant]
     Indication: NEURALGIA
     Dates: start: 20050115
  9. ESTRIOL [Concomitant]
     Indication: OVARIAN FAILURE
  10. OXASCAND [Concomitant]
     Dates: start: 20050801
  11. REMERON [Concomitant]
     Indication: DEPRESSION
     Dates: start: 20050801
  12. SONATA [Concomitant]
     Indication: INSOMNIA
     Dates: start: 20050801
  13. TRISEKVENS [Concomitant]
     Indication: OVARIAN FAILURE
     Dosage: FREQ:DAILY
     Dates: start: 19730101

REACTIONS (1)
  - DEATH [None]
